FAERS Safety Report 7968103-2 (Version None)
Quarter: 2011Q4

REPORT INFORMATION
  Report Type: 
  Country: None (occurrence: None)
  Receive Date: 20111121
  Receipt Date: 20110919
  Transmission Date: 20120403
  Serious: No
  Sender: FDA-Public Use
  Company Number: 1000024019

PATIENT
  Age: 46 Year
  Sex: Male

DRUGS (2)
  1. VIIBRYD [Suspect]
     Indication: ANXIETY
     Dosage: 10 MG (10 MG, 1 IN 1 D), ORAL
     Route: 048
     Dates: start: 20110919
  2. EXFORGE (DIOVAN AMLO) (DIOVAN AMLO) [Concomitant]

REACTIONS (3)
  - FEELING JITTERY [None]
  - NAUSEA [None]
  - DIARRHOEA [None]
